FAERS Safety Report 24238781 (Version 4)
Quarter: 2024Q3

REPORT INFORMATION
  Report Type: Spontaneous
  Country: PT (occurrence: PT)
  Receive Date: 20240822
  Receipt Date: 20240917
  Transmission Date: 20241016
  Serious: Yes (Other)
  Sender: NOVARTIS
  Company Number: PT-MYLANLABS-2024M1074209

PATIENT
  Age: 58 Year
  Sex: Female

DRUGS (12)
  1. IMATINIB [Suspect]
     Active Substance: IMATINIB
     Indication: B precursor type acute leukaemia
     Dosage: 400 MG, QD
     Route: 065
  2. IMATINIB [Suspect]
     Active Substance: IMATINIB
     Dosage: 400 MILLIGRAM, QD (400 MG/DAY)
     Route: 065
  3. METHOTREXATE [Suspect]
     Active Substance: METHOTREXATE
     Indication: B precursor type acute leukaemia
     Dosage: 30 MG, QW
     Route: 030
  4. METHOTREXATE [Suspect]
     Active Substance: METHOTREXATE
     Indication: Acute lymphocytic leukaemia
  5. METHOTREXATE [Suspect]
     Active Substance: METHOTREXATE
     Indication: Product used for unknown indication
  6. VALACYCLOVIR [Suspect]
     Active Substance: VALACYCLOVIR HYDROCHLORIDE
     Indication: Drug therapy
     Dosage: 1 GRAM
     Route: 065
  7. VALACYCLOVIR [Suspect]
     Active Substance: VALACYCLOVIR HYDROCHLORIDE
     Indication: Acute lymphocytic leukaemia
  8. VALACYCLOVIR [Suspect]
     Active Substance: VALACYCLOVIR HYDROCHLORIDE
     Indication: Product used for unknown indication
  9. THIOGUANINE [Suspect]
     Active Substance: THIOGUANINE
     Indication: Drug therapy
     Dosage: UNK, QOD (40 MG/20 MG EVERY OTHER DAY)
     Route: 065
  10. THIOGUANINE [Suspect]
     Active Substance: THIOGUANINE
     Indication: Acute lymphocytic leukaemia
     Dosage: 2 DF, (UNK, QOD (40 MG/20 MG EVERY OTHER DAY))
     Route: 065
  11. THIOGUANINE [Suspect]
     Active Substance: THIOGUANINE
     Indication: Product used for unknown indication
  12. THIOGUANINE [Suspect]
     Active Substance: THIOGUANINE
     Indication: Acute lymphocytic leukaemia

REACTIONS (6)
  - Pneumonia [Unknown]
  - Pancytopenia [Unknown]
  - Red blood cell morphology abnormal [Unknown]
  - White blood cell morphology abnormal [Unknown]
  - Monocyte morphology abnormal [Unknown]
  - Neutrophil morphology abnormal [Unknown]
